FAERS Safety Report 15223627 (Version 1)
Quarter: 2018Q3

REPORT INFORMATION
  Report Type: Spontaneous
  Country: US (occurrence: US)
  Receive Date: 20180731
  Receipt Date: 20180731
  Transmission Date: 20181010
  Serious: No
  Sender: FDA-Public Use
  Company Number: US-AMGEN-USASP2018089885

PATIENT
  Age: 84 Year
  Sex: Male

DRUGS (2)
  1. IMLYGIC [Suspect]
     Active Substance: TALIMOGENE LAHERPAREPVEC
     Indication: PLASMA CELL MYELOMA
  2. IMLYGIC [Suspect]
     Active Substance: TALIMOGENE LAHERPAREPVEC
     Indication: SKIN LESION
     Dosage: 4 ML, UNK (10^6/ PFU/ML)
     Route: 058
     Dates: start: 20160614, end: 20180607

REACTIONS (1)
  - Injection site irritation [Not Recovered/Not Resolved]

NARRATIVE: CASE EVENT DATE: 201806
